FAERS Safety Report 11511065 (Version 4)
Quarter: 2017Q1

REPORT INFORMATION
  Report Type: Report from Study
  Country: DE (occurrence: DE)
  Receive Date: 20150915
  Receipt Date: 20170209
  Transmission Date: 20170428
  Serious: Yes (Hospitalization)
  Sender: FDA-Public Use
  Company Number: DE-BAXALTA-2015BLT001681

PATIENT
  Age: 18 Year
  Sex: Male
  Weight: 77.8 kg

DRUGS (14)
  1. NOVOSEVEN [Concomitant]
     Active Substance: COAGULATION FACTOR VIIA RECOMBINANT HUMAN
     Indication: HAEMORRHAGE
     Dosage: UNK UNK, AS NEEDED
     Route: 042
     Dates: start: 20141223
  2. FERRO SANOL [Concomitant]
     Active Substance: FERROUS GLYCINE SULFATE
     Indication: IRON DEFICIENCY
     Dosage: 100 MG, 2X A DAY
     Route: 048
     Dates: start: 20150209
  3. FEIBA NF [Suspect]
     Active Substance: ANTI-INHIBITOR COAGULANT COMPLEX
     Indication: HAEMORRHAGE PROPHYLAXIS
     Dosage: 5000 IU, ONCE
     Route: 042
     Dates: start: 20150907, end: 20150907
  4. ARCOXIA [Concomitant]
     Active Substance: ETORICOXIB
     Indication: ARTHROPATHY
     Dosage: 90 MG, AS NEEDED
     Route: 048
     Dates: start: 20141223
  5. ARCOXIA [Concomitant]
     Active Substance: ETORICOXIB
     Dosage: 90 MG, 1X A DAY
     Route: 048
     Dates: start: 20160111
  6. IBUPROFEN AL [Concomitant]
     Active Substance: IBUPROFEN
     Indication: ARTHROPATHY
     Dosage: 600 MG, AS NEEDED
     Route: 048
     Dates: start: 20141223
  7. ROCEPHIN [Concomitant]
     Active Substance: CEFTRIAXONE SODIUM
     Indication: DEVICE RELATED INFECTION
     Dosage: UNK UNK, AS NEEDED
     Route: 042
     Dates: start: 20141224
  8. CEFUROXIM [Concomitant]
     Active Substance: CEFUROXIME
     Indication: DEVICE RELATED INFECTION
     Dosage: UNK UNK, AS NEEDED
     Route: 048
     Dates: start: 20141224
  9. COTRIMOXAZOL AL [Concomitant]
     Indication: DEVICE RELATED INFECTION
     Dosage: 960 MG, 2X A DAY
     Route: 048
     Dates: start: 20150720
  10. ESOMEPRAZOL                        /01479301/ [Concomitant]
     Active Substance: ESOMEPRAZOLE
     Indication: GASTROOESOPHAGEAL REFLUX DISEASE
     Dosage: 40 MG, 1X A DAY
     Route: 048
     Dates: start: 20150723
  11. FEIBA NF [Suspect]
     Active Substance: ANTI-INHIBITOR COAGULANT COMPLEX
     Dosage: 5000 IU, 2X A DAY
     Route: 042
     Dates: start: 20150909
  12. FEIBA NF [Suspect]
     Active Substance: ANTI-INHIBITOR COAGULANT COMPLEX
     Dosage: 5000 IU, 1X A DAY
     Route: 042
     Dates: start: 20150914, end: 20151106
  13. PANTOPRAZOL [Concomitant]
     Active Substance: PANTOPRAZOLE SODIUM
     Indication: HELICOBACTER INFECTION
     Dosage: 40 MG, 2X A DAY
     Route: 048
     Dates: start: 20150206, end: 20151005
  14. FEIBA NF [Suspect]
     Active Substance: ANTI-INHIBITOR COAGULANT COMPLEX
     Indication: FACTOR VIII DEFICIENCY
     Dosage: UNK
     Dates: start: 20150907, end: 20150907

REACTIONS (1)
  - Central venous catheterisation [Recovered/Resolved]

NARRATIVE: CASE EVENT DATE: 20150908
